FAERS Safety Report 5043407-4 (Version None)
Quarter: 2006Q2

REPORT INFORMATION
  Report Type: 
  Country: None (occurrence: None)
  Receive Date: 20060601
  Receipt Date: 20060116
  Transmission Date: 20061013
  Serious: No
  Sender: FDA-Public Use
  Company Number: 2006PV007142

PATIENT
  Age: 41 Year
  Sex: Female
  Weight: 81.6475 kg

DRUGS (3)
  1. BYETTA [Suspect]
     Indication: DIABETES MELLITUS NON-INSULIN-DEPENDENT
     Dosage: 5 MCG; BID; SC
     Route: 058
     Dates: start: 20051201
  2. KETEK [Concomitant]
  3. HYDRAMET SYRUP [Concomitant]

REACTIONS (8)
  - ANOREXIA [None]
  - FATIGUE [None]
  - INFLUENZA [None]
  - LYMPHADENOPATHY [None]
  - NAUSEA [None]
  - PHARYNGITIS [None]
  - PYREXIA [None]
  - WEIGHT DECREASED [None]
